FAERS Safety Report 23519253 (Version 1)
Quarter: 2024Q1

REPORT INFORMATION
  Report Type: Spontaneous
  Country: US (occurrence: US)
  Receive Date: 20240213
  Receipt Date: 20240213
  Transmission Date: 20240410
  Serious: No
  Sender: FDA-Public Use
  Company Number: US-SA-SAC20240206000017

PATIENT
  Sex: Female
  Weight: 74.84 kg

DRUGS (13)
  1. DUPIXENT [Suspect]
     Active Substance: DUPILUMAB
     Indication: Dermatitis atopic
     Dosage: 300 MG, QOW
     Route: 058
  2. TRIAMCINOLONE ACETONIDE [Concomitant]
     Active Substance: TRIAMCINOLONE ACETONIDE
  3. OMEPRAZOLE [Concomitant]
     Active Substance: OMEPRAZOLE
  4. DICYCLOMINE HYDROCHLORIDE [Concomitant]
     Active Substance: DICYCLOMINE HYDROCHLORIDE
  5. GABAPENTIN [Concomitant]
     Active Substance: GABAPENTIN
  6. HYOSCYAMINE SULFATE [Concomitant]
     Active Substance: HYOSCYAMINE SULFATE
  7. LACTULOSE [Concomitant]
     Active Substance: LACTULOSE
  8. ALBUTEROL SULFATE [Concomitant]
     Active Substance: ALBUTEROL SULFATE
  9. TRULANCE [Concomitant]
     Active Substance: PLECANATIDE
  10. VITAMIN D2 [Concomitant]
     Active Substance: ERGOCALCIFEROL
  11. LINZESS [Concomitant]
     Active Substance: LINACLOTIDE
  12. AMITRIPTYLINE HYDROCHLORIDE [Concomitant]
     Active Substance: AMITRIPTYLINE HYDROCHLORIDE
  13. KESIMPTA [Concomitant]
     Active Substance: OFATUMUMAB

REACTIONS (2)
  - Pain in extremity [Not Recovered/Not Resolved]
  - Arthralgia [Not Recovered/Not Resolved]
